FAERS Safety Report 5122013-7 (Version None)
Quarter: 2006Q4

REPORT INFORMATION
  Report Type: 
  Country: None (occurrence: None)
  Receive Date: 20061004
  Receipt Date: 20061004
  Transmission Date: 20070319
  Serious: Yes (Other)
  Sender: FDA-Public Use
  Company Number: None

PATIENT
  Age: 73 Year
  Sex: Male
  Weight: 74.8 kg

DRUGS (12)
  1. HEPARIN SODIUM [Suspect]
     Dosage: 100 U/ML, @8ML /HR , INTRAVEN
     Route: 042
     Dates: start: 20060508, end: 20060527
  2. ACETAMINOPHEN [Concomitant]
     Route: 048
  3. LOVENOX [Concomitant]
  4. MORPHINE SULFATE [Concomitant]
  5. HYTRIN [Concomitant]
     Route: 048
  6. AMIODARONE HCL (CORBARONE) [Concomitant]
  7. METOPROLOL TARTRATE [Concomitant]
  8. INSULIN REG HUMAN (NOVOLIN R) [Concomitant]
  9. FUROSEMIDE [Concomitant]
  10. PANTOPRAZOLE NA (PROTONIX) [Concomitant]
  11. VANCOMYCIN HCL [Concomitant]
  12. MEROPENEM [Concomitant]

REACTIONS (1)
  - THROMBOCYTOPENIA [None]
